FAERS Safety Report 7405680-4 (Version None)
Quarter: 2011Q2

REPORT INFORMATION
  Report Type: 
  Country: None (occurrence: None)
  Receive Date: 20110411
  Receipt Date: 20110331
  Transmission Date: 20111010
  Serious: Yes (Hospitalization, Other)
  Sender: FDA-Public Use
  Company Number: US-ROCHE-751886

PATIENT
  Sex: Male
  Weight: 86.2 kg

DRUGS (1)
  1. ACCUTANE [Suspect]
     Indication: ACNE
     Route: 065
     Dates: start: 19990901, end: 20000301

REACTIONS (11)
  - INFLAMMATORY BOWEL DISEASE [None]
  - DEPRESSED MOOD [None]
  - NEPHROLITHIASIS [None]
  - IRRITABLE BOWEL SYNDROME [None]
  - COLON CANCER [None]
  - COLONIC POLYP [None]
  - ILEUS PARALYTIC [None]
  - CALCULUS URETERIC [None]
  - COLITIS ULCERATIVE [None]
  - INJURY [None]
  - INTESTINAL OBSTRUCTION [None]
